FAERS Safety Report 20587101 (Version 1)
Quarter: 2022Q1

REPORT INFORMATION
  Report Type: Spontaneous
  Country: CA (occurrence: CA)
  Receive Date: 20220314
  Receipt Date: 20220314
  Transmission Date: 20220424
  Serious: Yes (Hospitalization)
  Sender: FDA-Public Use
  Company Number: CA-ABBVIE-22K-028-4313070-00

PATIENT
  Age: 17 Year
  Sex: Female
  Weight: 45 kg

DRUGS (1)
  1. SEVOFLURANE [Suspect]
     Active Substance: SEVOFLURANE
     Indication: Product used for unknown indication
     Dosage: LIQUID INHALATION
     Route: 055

REACTIONS (4)
  - Endotracheal intubation [Recovering/Resolving]
  - Resuscitation [Recovering/Resolving]
  - Heart rate decreased [Recovering/Resolving]
  - Cardiac arrest [Recovering/Resolving]
